FAERS Safety Report 11810557 (Version 1)
Quarter: 2015Q4

REPORT INFORMATION
  Report Type: Spontaneous
  Country: US (occurrence: US)
  Receive Date: 20151208
  Receipt Date: 20151208
  Transmission Date: 20160305
  Serious: Yes (Hospitalization)
  Sender: FDA-Public Use
  Company Number: US-IGSA-GTI003707

PATIENT
  Age: 42 Year
  Sex: Female

DRUGS (4)
  1. GAMUNEX-C [Suspect]
     Active Substance: HUMAN IMMUNOGLOBULIN G
     Indication: PRIMARY IMMUNODEFICIENCY SYNDROME
     Route: 058
     Dates: start: 201406, end: 20150629
  2. DIPHENHYDRAMINE. [Concomitant]
     Active Substance: DIPHENHYDRAMINE
     Indication: PREMEDICATION
  3. GAMUNEX-C [Suspect]
     Active Substance: HUMAN IMMUNOGLOBULIN G
     Indication: PRIMARY IMMUNODEFICIENCY SYNDROME
     Route: 058
     Dates: start: 201403, end: 201406
  4. ACETAMINOPHEN. [Concomitant]
     Active Substance: ACETAMINOPHEN
     Indication: PREMEDICATION

REACTIONS (9)
  - Swelling face [Recovered/Resolved]
  - Chest discomfort [Recovered/Resolved]
  - Anxiety [Recovered/Resolved]
  - Fatigue [Recovered/Resolved]
  - Paraesthesia [Recovered/Resolved]
  - Weight increased [None]
  - Restless legs syndrome [Recovered/Resolved]
  - Forced expiratory volume [Recovered/Resolved]
  - Chest discomfort [Recovered/Resolved]

NARRATIVE: CASE EVENT DATE: 201412
